FAERS Safety Report 9122515 (Version 1)
Quarter: 2013Q1

REPORT INFORMATION
  Report Type: Spontaneous
  Country: US (occurrence: US)
  Receive Date: 20130227
  Receipt Date: 20130227
  Transmission Date: 20140127
  Serious: Yes (Other)
  Sender: FDA-Public Use
  Company Number: PHEH2013US004535

PATIENT
  Sex: 0

DRUGS (1)
  1. DIOVAN [Suspect]
     Dosage: UNK UKN, UNK

REACTIONS (3)
  - Cerebrovascular accident [Unknown]
  - Venous haemorrhage [Unknown]
  - Myalgia [Unknown]
